FAERS Safety Report 21606312 (Version 1)
Quarter: 2022Q4

REPORT INFORMATION
  Report Type: Report from Study
  Country: US (occurrence: US)
  Receive Date: 20221117
  Receipt Date: 20221117
  Transmission Date: 20230112
  Serious: No
  Sender: FDA-Public Use
  Company Number: US-ABBVIE-4164449

PATIENT
  Age: 48 Year
  Sex: Female

DRUGS (4)
  1. HUMIRA [Suspect]
     Active Substance: ADALIMUMAB
     Indication: Rheumatoid arthritis
     Dosage: FORM STRENGTH: 40 MG
     Route: 058
  2. MODERNA COVID-19 VACCINE [Concomitant]
     Active Substance: ELASOMERAN
     Indication: COVID-19 immunisation
     Dosage: FIRST DOSE, FREQUENCY- ONE IN ONCE
     Route: 030
     Dates: start: 20201201, end: 20201201
  3. MODERNA COVID-19 VACCINE [Concomitant]
     Active Substance: ELASOMERAN
     Indication: COVID-19 immunisation
     Dosage: SECOND DOSE, FREQUENCY- ONE IN ONCE
     Route: 030
     Dates: start: 20210301, end: 20210301
  4. MODERNA COVID-19 VACCINE [Concomitant]
     Active Substance: ELASOMERAN
     Indication: COVID-19 immunisation
     Dosage: THIRD DOSE, FREQUENCY- ONE IN ONCE
     Route: 030
     Dates: start: 20210901, end: 20210901

REACTIONS (6)
  - Panic reaction [Unknown]
  - COVID-19 [Unknown]
  - CREST syndrome [Unknown]
  - Clostridium difficile infection [Recovered/Resolved]
  - Chest pain [Unknown]
  - Scleroderma [Unknown]

NARRATIVE: CASE EVENT DATE: 20211001
